FAERS Safety Report 10284830 (Version 3)
Quarter: 2014Q4

REPORT INFORMATION
  Report Type: Spontaneous
  Country: IT (occurrence: IT)
  Receive Date: 20140708
  Receipt Date: 20141114
  Transmission Date: 20150528
  Serious: Yes (Other)
  Sender: FDA-Public Use
  Company Number: IT-BRISTOL-MYERS SQUIBB COMPANY-21130752

PATIENT
  Age: 79 Year
  Sex: Female

DRUGS (4)
  1. ANTRA [Interacting]
     Active Substance: OMEPRAZOLE
     Indication: GASTRITIS
     Dosage: ANTRA ^20 MG CAPS^ ?INT ON 04JUN14
     Route: 048
  2. CONGESCOR [Concomitant]
     Active Substance: BISOPROLOL
     Dosage: 2.5 MG TABS
  3. COUMADIN [Suspect]
     Active Substance: WARFARIN SODIUM
     Indication: THROMBOSIS PROPHYLAXIS
     Route: 048
     Dates: start: 20100601, end: 20140604
  4. LASIX [Concomitant]
     Active Substance: FUROSEMIDE
     Indication: ESSENTIAL HYPERTENSION
     Dosage: 25MG TABS

REACTIONS (3)
  - Drug interaction [Unknown]
  - Conjunctival haemorrhage [Recovering/Resolving]
  - Headache [Recovering/Resolving]

NARRATIVE: CASE EVENT DATE: 20140603
